FAERS Safety Report 7210294-5 (Version None)
Quarter: 2011Q1

REPORT INFORMATION
  Report Type: 
  Country: None (occurrence: None)
  Receive Date: 20110105
  Receipt Date: 20101231
  Transmission Date: 20110831
  Serious: Yes (Death, Other)
  Sender: FDA-Public Use
  Company Number: JP-SANOFI-AVENTIS-2010SA078708

PATIENT
  Age: 75 Year
  Sex: Male

DRUGS (7)
  1. IRINOTECAN HYDROCHLORIDE [Concomitant]
     Indication: COLON CANCER METASTATIC
     Dates: start: 20090528
  2. OXALIPLATIN [Suspect]
     Indication: COLON CANCER METASTATIC
     Route: 041
     Dates: start: 20080307, end: 20080307
  3. OXALIPLATIN [Suspect]
     Route: 041
  4. FLUOROURACIL [Concomitant]
     Indication: COLON CANCER METASTATIC
     Dates: start: 20071222, end: 20090909
  5. CALCIUM LEVOFOLINATE [Concomitant]
     Indication: COLON CANCER METASTATIC
     Dates: start: 20080307
  6. AVASTIN [Suspect]
     Indication: COLON CANCER METASTATIC
     Route: 041
     Dates: start: 20080307, end: 20080307
  7. AVASTIN [Suspect]
     Route: 041

REACTIONS (3)
  - RESPIRATORY FAILURE [None]
  - HEPATIC ARTERY OCCLUSION [None]
  - HYPOAESTHESIA [None]
